FAERS Safety Report 17252496 (Version 2)
Quarter: 2020Q1

REPORT INFORMATION
  Report Type: Spontaneous
  Country: CN (occurrence: CN)
  Receive Date: 20200109
  Receipt Date: 20200116
  Transmission Date: 20200409
  Serious: Yes (Other)
  Sender: FDA-Public Use
  Company Number: CN-ASTRAZENECA-2020SE02754

PATIENT
  Age: 67 Year
  Sex: Male
  Weight: 59 kg

DRUGS (2)
  1. IRESSA [Suspect]
     Active Substance: GEFITINIB
     Indication: NON-SMALL CELL LUNG CANCER
     Dosage: 1.0DF UNKNOWN
     Route: 048
     Dates: start: 201706, end: 201912
  2. TRADITIONAL CHINESE MEDICINE [Concomitant]
     Active Substance: HERBALS\HOMEOPATHICS
     Dosage: THE DOSAGE OF HALF A MONTH (14 DAYS) IN 1 MONTH
     Route: 048
     Dates: start: 201711

REACTIONS (5)
  - Malignant neoplasm progression [Recovering/Resolving]
  - General physical health deterioration [Unknown]
  - Dental caries [Unknown]
  - Drug resistance [Unknown]
  - Pruritus [Recovered/Resolved]
